FAERS Safety Report 23216470 (Version 2)
Quarter: 2023Q4

REPORT INFORMATION
  Report Type: Spontaneous
  Country: CH (occurrence: CH)
  Receive Date: 20231122
  Receipt Date: 20231130
  Transmission Date: 20240110
  Serious: Yes (Hospitalization, Other)
  Sender: FDA-Public Use
  Company Number: CN-MACLEODS PHARMACEUTICALS US LTD-MAC2023044314

PATIENT

DRUGS (2)
  1. LIDOCAINE [Suspect]
     Active Substance: LIDOCAINE
     Indication: Anaesthesia eye
     Dosage: 1 DOSAGE FORM, SINGLE (INJECTION)
  2. CEFUROXIME SODIUM [Suspect]
     Active Substance: CEFUROXIME SODIUM
     Indication: Antibiotic therapy
     Dosage: 0.05 MILLILITER, SINGLE (1 MG/0.1ML; ONE INJECTION)

REACTIONS (3)
  - Retinopathy [Recovering/Resolving]
  - Retinal degeneration [Recovering/Resolving]
  - Blindness [Recovering/Resolving]

NARRATIVE: CASE EVENT DATE: 20220101
